FAERS Safety Report 22293774 (Version 1)
Quarter: 2023Q2

REPORT INFORMATION
  Report Type: Spontaneous
  Country: HU (occurrence: HU)
  Receive Date: 20230508
  Receipt Date: 20230508
  Transmission Date: 20230721
  Serious: Yes (Death)
  Sender: FDA-Public Use
  Company Number: None

PATIENT
  Age: 68 Year
  Sex: Male
  Weight: 85 kg

DRUGS (10)
  1. CAPECITABINE [Suspect]
     Active Substance: CAPECITABINE
     Indication: Colon cancer
     Dosage: STRENGTH: 500 MG
     Dates: start: 20230124
  2. OXALIPLATIN [Suspect]
     Active Substance: OXALIPLATIN
     Indication: Colon cancer
     Dosage: STRENGTH: 5, IN 500 ML DEXTROSE SOLUTION FOR TWO HOURS
     Dates: start: 20230123, end: 20230123
  3. FAMOTIDINE [Concomitant]
     Active Substance: FAMOTIDINE
  4. ROSUVASTATIN [Concomitant]
     Active Substance: ROSUVASTATIN
  5. ONDANSETRON [Concomitant]
     Active Substance: ONDANSETRON
     Indication: Premedication
     Dates: start: 20230123, end: 20230123
  6. ALLOPURINOL [Concomitant]
     Active Substance: ALLOPURINOL
  7. DEXAMETHASONE [Concomitant]
     Active Substance: DEXAMETHASONE
     Indication: Premedication
     Dates: start: 20230123, end: 20230123
  8. INDAPAMIDE\PERINDOPRIL [Concomitant]
     Active Substance: INDAPAMIDE\PERINDOPRIL
  9. ENOXAPARIN SODIUM [Concomitant]
     Active Substance: ENOXAPARIN SODIUM
     Dosage: SOLUTION FOR INJECTION IN PRE-FILLED SYRINGE
  10. FAMOTIDINE [Concomitant]
     Active Substance: FAMOTIDINE
     Indication: Premedication
     Dates: start: 20230123, end: 20230123

REACTIONS (9)
  - Inflammation [Fatal]
  - General physical health deterioration [Fatal]
  - Decreased appetite [Fatal]
  - Drug-induced liver injury [Fatal]
  - Hyponatraemia [Fatal]
  - Renal impairment [Fatal]
  - Diarrhoea [Fatal]
  - Blood lactate dehydrogenase increased [Fatal]
  - Asthenia [Fatal]

NARRATIVE: CASE EVENT DATE: 20230123
